FAERS Safety Report 22058921 (Version 2)
Quarter: 2023Q1

REPORT INFORMATION
  Report Type: Report from Study
  Country: CO (occurrence: CO)
  Receive Date: 20230303
  Receipt Date: 20230306
  Transmission Date: 20230418
  Serious: Yes (Hospitalization)
  Sender: FDA-Public Use
  Company Number: CO-JNJFOC-20230302630

PATIENT
  Age: 73 Year
  Sex: Female
  Weight: 67 kg

DRUGS (1)
  1. DARZALEX [Suspect]
     Active Substance: DARATUMUMAB
     Indication: Plasma cell myeloma
     Dosage: TREATMENT WAS NOT PART OF CAR-T THERAPY PATHWAY
     Route: 042
     Dates: start: 20211228

REACTIONS (1)
  - COVID-19 pneumonia [Recovering/Resolving]

NARRATIVE: CASE EVENT DATE: 20230218
